FAERS Safety Report 9274710 (Version 1)
Quarter: 2013Q2

REPORT INFORMATION
  Report Type: Spontaneous
  Country: US (occurrence: None)
  Receive Date: 20130430
  Receipt Date: 20130430
  Transmission Date: 20140414
  Serious: Yes (Disabling, Other)
  Sender: FDA-Public Use
  Company Number: None

PATIENT
  Age: 42 Year
  Sex: Female
  Weight: 52.16 kg

DRUGS (2)
  1. LEVAQUIN [Suspect]
     Indication: SINUSITIS
     Route: 002
     Dates: start: 20041215, end: 20041225
  2. PREDNISONE [Concomitant]

REACTIONS (17)
  - Cognitive disorder [None]
  - Amnesia [None]
  - Tendon disorder [None]
  - Meniscus injury [None]
  - Ligament rupture [None]
  - Joint swelling [None]
  - Arthralgia [None]
  - Arthralgia [None]
  - Arthropathy [None]
  - Ligament rupture [None]
  - Neuropathy peripheral [None]
  - Pain in extremity [None]
  - Muscular weakness [None]
  - Muscle atrophy [None]
  - Dizziness [None]
  - Anxiety [None]
  - Insomnia [None]
